FAERS Safety Report 25283273 (Version 2)
Quarter: 2025Q2

REPORT INFORMATION
  Report Type: Spontaneous
  Country: BE (occurrence: BE)
  Receive Date: 20250508
  Receipt Date: 20250521
  Transmission Date: 20250717
  Serious: Yes (Hospitalization)
  Sender: TEVA
  Company Number: BE-TEVA-VS-3327897

PATIENT
  Age: 25 Year
  Sex: Male

DRUGS (4)
  1. MORPHINE [Suspect]
     Active Substance: MORPHINE
     Indication: Rhabdomyolysis
     Route: 065
  2. KETAMINE [Suspect]
     Active Substance: KETAMINE
     Indication: Drug abuse
     Route: 048
  3. MIDAZOLAM [Suspect]
     Active Substance: MIDAZOLAM
     Indication: Rhabdomyolysis
     Route: 065
  4. CLONIDINE [Suspect]
     Active Substance: CLONIDINE
     Indication: Rhabdomyolysis
     Route: 065

REACTIONS (6)
  - Rhabdomyolysis [Recovering/Resolving]
  - Intentional overdose [Unknown]
  - Myositis [Unknown]
  - Drug abuse [Unknown]
  - Compartment syndrome [Recovering/Resolving]
  - Drug ineffective [Unknown]
